FAERS Safety Report 23873282 (Version 1)
Quarter: 2024Q2

REPORT INFORMATION
  Report Type: Spontaneous
  Country: JP (occurrence: JP)
  Receive Date: 20240520
  Receipt Date: 20240520
  Transmission Date: 20240716
  Serious: Yes (Other)
  Sender: FDA-Public Use
  Company Number: JP-PERRIGO-24JP004594

PATIENT
  Age: 72 Year
  Sex: Female

DRUGS (1)
  1. ACETAMINOPHEN [Suspect]
     Active Substance: ACETAMINOPHEN
     Indication: Product used for unknown indication
     Dosage: UNKNOWN, UNKNOWN
     Route: 048

REACTIONS (6)
  - Anaphylactic reaction [Unknown]
  - Wheezing [Unknown]
  - Dyspnoea [Unknown]
  - Hypotension [Unknown]
  - Flushing [Unknown]
  - Rash [Unknown]
